FAERS Safety Report 13854178 (Version 6)
Quarter: 2017Q3

REPORT INFORMATION
  Report Type: Spontaneous
  Country: US (occurrence: US)
  Receive Date: 20170809
  Receipt Date: 20170921
  Transmission Date: 20171127
  Serious: Yes (Hospitalization)
  Sender: FDA-Public Use
  Company Number: US-ACTELION-A-NJ2017-157794

PATIENT
  Age: 32 Year
  Sex: Female
  Weight: 78.5 kg

DRUGS (9)
  1. LETAIRIS [Concomitant]
     Active Substance: AMBRISENTAN
  2. VELETRI [Suspect]
     Active Substance: EPOPROSTENOL
     Indication: PULMONARY ARTERIAL HYPERTENSION
     Dosage: 15 NG/KG, PER MIN
     Route: 042
  3. OPSUMIT [Concomitant]
     Active Substance: MACITENTAN
     Indication: PULMONARY ARTERIAL HYPERTENSION
     Route: 048
  4. ADEMPAS [Concomitant]
     Active Substance: RIOCIGUAT
  5. DILTIAZEM. [Concomitant]
     Active Substance: DILTIAZEM
  6. UPTRAVI [Suspect]
     Active Substance: SELEXIPAG
     Indication: PULMONARY ARTERIAL HYPERTENSION
     Dosage: 800 MCG, BID
     Route: 048
     Dates: start: 20160909, end: 20170811
  7. COUMADIN [Concomitant]
     Active Substance: WARFARIN SODIUM
  8. ADCIRCA [Concomitant]
     Active Substance: TADALAFIL
  9. REMODULIN [Concomitant]
     Active Substance: TREPROSTINIL

REACTIONS (26)
  - Transplant evaluation [Unknown]
  - Pain in jaw [Unknown]
  - Hot flush [Unknown]
  - Catheter site erythema [Unknown]
  - Pain in extremity [Unknown]
  - Dyspnoea [Unknown]
  - Decreased appetite [Unknown]
  - Cardiomegaly [Unknown]
  - Swelling [Unknown]
  - Palpitations [Unknown]
  - Headache [Unknown]
  - Supraventricular tachycardia [Unknown]
  - Myalgia [Unknown]
  - Heart rate increased [Unknown]
  - Paraesthesia [Unknown]
  - Cough [Unknown]
  - Rash pruritic [Unknown]
  - Catheter site rash [Recovering/Resolving]
  - Abdominal distension [Unknown]
  - Diarrhoea [Unknown]
  - Peripheral swelling [Unknown]
  - Right ventricular failure [Unknown]
  - Hypotension [Unknown]
  - Pain [Unknown]
  - Vomiting [Unknown]
  - Nausea [Unknown]
